FAERS Safety Report 4917342-3 (Version None)
Quarter: 2006Q1

REPORT INFORMATION
  Report Type: 
  Country: None (occurrence: None)
  Receive Date: 20060221
  Receipt Date: 20050516
  Transmission Date: 20060701
  Serious: Yes (Hospitalization)
  Sender: FDA-Public Use
  Company Number: US-MERCK-0505USA01965

PATIENT
  Age: 71 Year
  Sex: Female
  Weight: 61 kg

DRUGS (12)
  1. VIOXX [Suspect]
     Indication: ARTHRALGIA
     Route: 048
     Dates: start: 20000401, end: 20031101
  2. PREMARIN [Concomitant]
     Route: 065
  3. SYNTHROID [Concomitant]
     Route: 065
  4. IMDUR [Concomitant]
     Route: 065
  5. METOPROLOL [Concomitant]
     Route: 065
  6. LIPITOR [Concomitant]
     Route: 065
  7. FOLTX [Concomitant]
     Route: 065
  8. PLAVIX [Concomitant]
     Route: 065
  9. ASPIRIN [Concomitant]
     Route: 065
  10. TYLENOL W/ CODEINE NO. 3 [Concomitant]
     Route: 065
  11. ELAVIL [Concomitant]
     Route: 065
  12. KLONOPIN [Concomitant]
     Route: 065

REACTIONS (13)
  - ARTHROPATHY [None]
  - BLOOD PRESSURE SYSTOLIC INCREASED [None]
  - CATARACT [None]
  - CEREBRAL INFARCTION [None]
  - CEREBROVASCULAR ACCIDENT [None]
  - CORONARY ARTERY OCCLUSION [None]
  - COUGH [None]
  - DYSPNOEA [None]
  - EYE DISORDER [None]
  - FALL [None]
  - PHARYNGOLARYNGEAL PAIN [None]
  - PYREXIA [None]
  - SPUTUM DISCOLOURED [None]
